FAERS Safety Report 6772174-9 (Version None)
Quarter: 2010Q2

REPORT INFORMATION
  Report Type: 
  Country: None (occurrence: None)
  Receive Date: 20100616
  Receipt Date: 20100602
  Transmission Date: 20101027
  Serious: Yes (Other)
  Sender: FDA-Public Use
  Company Number: PHEH2010US03027

PATIENT
  Sex: Female
  Weight: 72.5 kg

DRUGS (4)
  1. GLEEVEC [Suspect]
     Indication: MALIGNANT SOFT TISSUE NEOPLASM
     Dosage: 400 MG, BID
     Route: 048
     Dates: start: 20100101, end: 20100101
  2. GLEEVEC [Interacting]
     Dosage: 400 MG, QD
     Route: 048
  3. COMPAZINE [Interacting]
     Indication: NAUSEA
  4. NEXIUM [Concomitant]

REACTIONS (11)
  - ABDOMINAL PAIN [None]
  - BACK PAIN [None]
  - DRUG INTERACTION [None]
  - FLUID RETENTION [None]
  - FREQUENT BOWEL MOVEMENTS [None]
  - HEPATIC LESION [None]
  - MYALGIA [None]
  - NAUSEA [None]
  - PALLOR [None]
  - RASH [None]
  - VISION BLURRED [None]
